FAERS Safety Report 8502587-6 (Version None)
Quarter: 2012Q3

REPORT INFORMATION
  Report Type: 
  Country: None (occurrence: None)
  Receive Date: 20120703
  Receipt Date: 20120621
  Transmission Date: 20120928
  Serious: Yes (Death, Hospitalization)
  Sender: FDA-Public Use
  Company Number: DKLU1077635

PATIENT
  Age: 6 Month
  Sex: Male
  Weight: 6 kg

DRUGS (4)
  1. PHENOBARBITAL TAB [Concomitant]
  2. TOPAMAX [Concomitant]
  3. SABRIL [Suspect]
     Indication: GRAND MAL CONVULSION
     Dosage: 10 ML MILLILITRE(S), 2 IN 1 D, ORAL
     Route: 048
     Dates: start: 20120303
  4. SABRIL [Suspect]
     Indication: EPILEPSY
     Dosage: 10 ML MILLILITRE(S), 2 IN 1 D, ORAL
     Route: 048
     Dates: start: 20120303

REACTIONS (2)
  - CONVULSION [None]
  - ENCEPHALOPATHY [None]
